FAERS Safety Report 4725603-6 (Version None)
Quarter: 2005Q3

REPORT INFORMATION
  Report Type: 
  Country: None (occurrence: None)
  Receive Date: 20050727
  Receipt Date: 20050719
  Transmission Date: 20060218
  Serious: Yes (Other)
  Sender: FDA-Public Use
  Company Number: DE-BRISTOL-MYERS SQUIBB COMPANY-13044615

PATIENT
  Age: 59 Year
  Sex: Male
  Weight: 98 kg

DRUGS (4)
  1. KARVEZIDE TABS 300MG/12.5MG [Suspect]
     Indication: HYPERTENSION
     Dates: start: 20050315, end: 20050101
  2. AMLODIPINE [Concomitant]
     Indication: HYPERTENSION
     Dosage: 100 MG 0.5 TABLETS TWICE PER DAY
     Dates: start: 20040825
  3. MOXONIDINE [Concomitant]
     Dosage: 0.4  1 TABLETS PER DAY
     Dates: start: 20050406
  4. SIMVASTATIN [Concomitant]
     Dosage: 20 MG 0.5 TABLETS PER DAY
     Dates: start: 20040527

REACTIONS (3)
  - CONDITION AGGRAVATED [None]
  - DEPRESSION [None]
  - DIABETES MELLITUS [None]
